FAERS Safety Report 5930635-6 (Version None)
Quarter: 2008Q4

REPORT INFORMATION
  Report Type: 
  Country: None (occurrence: None)
  Receive Date: 20081027
  Receipt Date: 20081016
  Transmission Date: 20090506
  Serious: Yes (Disabling)
  Sender: FDA-Public Use
  Company Number: DE-ELI_LILLY_AND_COMPANY-DE200810002408

PATIENT
  Sex: Female
  Weight: 26.4 kg

DRUGS (3)
  1. SOMATROPIN [Suspect]
     Indication: TURNER'S SYNDROME
     Dosage: 1 MG, DAILY (1/D)
     Route: 065
     Dates: start: 20080218, end: 20080225
  2. SOMATROPIN [Suspect]
     Dosage: 0.7 MG, DAILY (1/D)
     Route: 065
     Dates: start: 20080226, end: 20080322
  3. SOMATROPIN [Suspect]
     Dosage: 1 MG, DAILY (1/D)
     Route: 065
     Dates: start: 20080323

REACTIONS (2)
  - EXOSTOSIS [None]
  - FIBROUS CORTICAL DEFECT [None]
